FAERS Safety Report 20148382 (Version 3)
Quarter: 2022Q1

REPORT INFORMATION
  Report Type: Report from Study
  Country: BR (occurrence: BR)
  Receive Date: 20211204
  Receipt Date: 20220330
  Transmission Date: 20220423
  Serious: Yes (Other)
  Sender: FDA-Public Use
  Company Number: BR-NOVARTISPH-NVSC2021BR163135

PATIENT
  Age: 31 Year
  Sex: Female

DRUGS (24)
  1. COSENTYX [Suspect]
     Active Substance: SECUKINUMAB
     Indication: Psoriasis
     Dosage: 300 MG
     Route: 065
     Dates: start: 20200731
  2. COSENTYX [Suspect]
     Active Substance: SECUKINUMAB
     Dosage: UNK
     Route: 065
     Dates: start: 20200807
  3. COSENTYX [Suspect]
     Active Substance: SECUKINUMAB
     Dosage: UNK
     Route: 065
     Dates: start: 20200814
  4. COSENTYX [Suspect]
     Active Substance: SECUKINUMAB
     Dosage: UNK
     Route: 065
     Dates: start: 20200821
  5. COSENTYX [Suspect]
     Active Substance: SECUKINUMAB
     Dosage: UNK
     Route: 065
     Dates: start: 20200828
  6. COSENTYX [Suspect]
     Active Substance: SECUKINUMAB
     Dosage: UNK (MAINTENANCE DOSE)
     Route: 065
     Dates: start: 20200928
  7. COSENTYX [Suspect]
     Active Substance: SECUKINUMAB
     Dosage: UNK
     Route: 065
     Dates: start: 20201028
  8. COSENTYX [Suspect]
     Active Substance: SECUKINUMAB
     Dosage: UNK (EVERY 45 DAYS)
     Route: 065
     Dates: start: 20201212
  9. COSENTYX [Suspect]
     Active Substance: SECUKINUMAB
     Dosage: UNK
     Route: 065
     Dates: start: 20210313
  10. COSENTYX [Suspect]
     Active Substance: SECUKINUMAB
     Dosage: UNK
     Route: 065
     Dates: start: 20210315
  11. COSENTYX [Suspect]
     Active Substance: SECUKINUMAB
     Dosage: 300 MG (24 AMPOULES DOSES FOR 1 YEAR)
     Route: 065
  12. COSENTYX [Suspect]
     Active Substance: SECUKINUMAB
     Dosage: UNK
     Route: 065
  13. COSENTYX [Suspect]
     Active Substance: SECUKINUMAB
     Dosage: UNK (LAST APPLICATION)
     Route: 065
     Dates: start: 20210619
  14. CLOBETASOL PROPIONATE [Concomitant]
     Active Substance: CLOBETASOL PROPIONATE
     Indication: Product used for unknown indication
     Dosage: UNK(COMBINED WITH SHAMPOO CLEAR)
     Route: 065
  15. GLYCERIN [Concomitant]
     Active Substance: GLYCERIN
     Indication: Product used for unknown indication
     Dosage: UNK UNK, UNKNOWN
     Route: 061
  16. LANOLIN [Concomitant]
     Active Substance: LANOLIN
     Indication: Product used for unknown indication
     Dosage: UNK
     Route: 061
  17. COLD CREAM [Concomitant]
     Indication: Product used for unknown indication
     Dosage: UNK
     Route: 061
  18. LCD [Concomitant]
     Indication: Product used for unknown indication
     Dosage: UNK
     Route: 065
  19. SALICYLIC ACID [Concomitant]
     Active Substance: SALICYLIC ACID
     Indication: Product used for unknown indication
     Dosage: UNK UNK, UNKNOWN
     Route: 061
  20. D-PANTHENOL [Concomitant]
     Active Substance: DEXPANTHENOL
     Indication: Product used for unknown indication
     Dosage: UNK
     Route: 061
  21. FERROUS SULFATE [Concomitant]
     Active Substance: FERROUS SULFATE
     Indication: Product used for unknown indication
     Dosage: 1 DOSAGE FORM (180 CP TAKE 2CP BEFORE LUNCH AND DINNER)
     Route: 048
  22. EPIDUO [Concomitant]
     Active Substance: ADAPALENE\BENZOYL PEROXIDE
     Indication: Product used for unknown indication
     Dosage: UNK(APPLY TO FACE OVERNIGHT AND WASH IN THE MORNING.)
     Route: 065
  23. ACNEC [Concomitant]
     Indication: Product used for unknown indication
     Dosage: UNK
     Route: 065
  24. TITANIUM DIOXIDE [Concomitant]
     Active Substance: TITANIUM DIOXIDE
     Indication: Product used for unknown indication
     Dosage: UNK
     Route: 065

REACTIONS (10)
  - Immunodeficiency [Unknown]
  - Tonsillitis [Recovered/Resolved]
  - Tonsillitis [Recovered/Resolved]
  - Pharyngitis [Recovered/Resolved]
  - COVID-19 [Unknown]
  - Hypoferritinaemia [Unknown]
  - Abdominal discomfort [Unknown]
  - Candida infection [Recovering/Resolving]
  - Pharyngitis [Unknown]
  - Inappropriate schedule of product administration [Unknown]

NARRATIVE: CASE EVENT DATE: 20200823
